FAERS Safety Report 20116338 (Version 1)
Quarter: 2021Q4

REPORT INFORMATION
  Report Type: Spontaneous
  Country: IN (occurrence: IN)
  Receive Date: 20211126
  Receipt Date: 20211126
  Transmission Date: 20220303
  Serious: Yes (Other)
  Sender: FDA-Public Use
  Company Number: IN-SUN PHARMACEUTICAL INDUSTRIES LTD-2021R1-318449

PATIENT
  Age: 61 Year
  Sex: Female

DRUGS (2)
  1. ERLOTINIB [Suspect]
     Active Substance: ERLOTINIB
     Indication: Gallbladder cancer
     Dosage: 150 MILLIGRAM, DAILY
     Route: 048
  2. CAPECITABINE [Suspect]
     Active Substance: CAPECITABINE
     Indication: Product used for unknown indication
     Dosage: THREE CYCLES OF ORAL CAPECITABINE
     Route: 048

REACTIONS (2)
  - PRIDE syndrome [Unknown]
  - Palmar-plantar erythrodysaesthesia syndrome [Unknown]
